FAERS Safety Report 8776422 (Version 2)
Quarter: 2013Q4

REPORT INFORMATION
  Report Type: Spontaneous
  Country: US (occurrence: US)
  Receive Date: 20120910
  Receipt Date: 20131226
  Transmission Date: 20140711
  Serious: Yes (Death)
  Sender: FDA-Public Use
  Company Number: PHEH2012US017528

PATIENT
  Age: 67 Year
  Sex: Male

DRUGS (10)
  1. TASIGNA [Suspect]
     Indication: GASTROINTESTINAL STROMAL TUMOUR
     Dosage: 300 MG, BID
     Route: 048
     Dates: start: 20120207
  2. TASIGNA [Suspect]
     Indication: OFF LABEL USE
  3. DILAUDID [Concomitant]
     Indication: PAIN
     Dosage: 4 MG, UNK
     Dates: end: 20120818
  4. FENTANYL [Concomitant]
  5. TEKTURNA [Concomitant]
  6. CYMBALTA [Concomitant]
     Indication: DEPRESSION
     Dosage: 20 MG, QD
     Dates: end: 20120817
  7. ZYPREXA [Concomitant]
     Indication: BIPOLAR DISORDER
     Dosage: 10 MG, QD
     Dates: end: 20120817
  8. OXYBUTYNIN [Concomitant]
     Indication: PAIN
     Dosage: 5 MG, BID
     Dates: end: 20120818
  9. DECADRON                                /CAN/ [Concomitant]
  10. DURAGESIC [Concomitant]
     Dosage: 275 MG, UNK
     Dates: end: 20120817

REACTIONS (1)
  - Gastrointestinal stromal tumour [Fatal]
